FAERS Safety Report 18307553 (Version 5)
Quarter: 2020Q4

REPORT INFORMATION
  Report Type: Spontaneous
  Country: US (occurrence: US)
  Receive Date: 20200924
  Receipt Date: 20201126
  Transmission Date: 20210113
  Serious: Yes (Other)
  Sender: FDA-Public Use
  Company Number: US-PFIZER INC-2020366676

PATIENT
  Age: 55 Year
  Sex: Female
  Weight: 57.61 kg

DRUGS (4)
  1. PHENYTOIN SODIUM TARO [Suspect]
     Active Substance: PHENYTOIN SODIUM
     Indication: SEIZURE
     Dosage: UNK, 1X/DAY (100 MG 3-4 CAPSULE EVERY NIGHT)
     Route: 048
  2. DILANTIN [Suspect]
     Active Substance: PHENYTOIN
     Indication: SEIZURE
     Dosage: UNK, 1X/DAY (100MG 3-4 CAPSULE EVERY NIGHT)
     Route: 048
  3. PHENYTOIN. [Suspect]
     Active Substance: PHENYTOIN
     Indication: GENERALISED TONIC-CLONIC SEIZURE
     Dosage: UNK
     Route: 048
     Dates: start: 2016
  4. PHENYTOIN SODIUM TARO [Suspect]
     Active Substance: PHENYTOIN SODIUM
     Indication: GENERALISED TONIC-CLONIC SEIZURE
     Dosage: UNK, 1X/DAY (300 TO 400MG BY MOUTH EACH NIGHT)
     Route: 048
     Dates: start: 2011

REACTIONS (6)
  - Hypersomnia [Unknown]
  - Intentional product misuse [Unknown]
  - Seizure [Unknown]
  - Drug level fluctuating [Unknown]
  - Somnolence [Unknown]
  - Dizziness [Unknown]

NARRATIVE: CASE EVENT DATE: 2020
